FAERS Safety Report 5859609-0 (Version None)
Quarter: 2008Q3

REPORT INFORMATION
  Report Type: 
  Country: None (occurrence: None)
  Receive Date: 20080826
  Receipt Date: 20080826
  Transmission Date: 20090109
  Serious: Yes (Hospitalization)
  Sender: FDA-Public Use
  Company Number: None

PATIENT
  Age: 41 Year
  Sex: Male
  Weight: 97.5234 kg

DRUGS (1)
  1. MERIDIA [Suspect]
     Indication: WEIGHT DECREASED
     Dosage: ONE CAPSULE EVERY MORNING PO
     Route: 048
     Dates: start: 20080714, end: 20080804

REACTIONS (5)
  - BACK PAIN [None]
  - DEEP VEIN THROMBOSIS [None]
  - FEELING ABNORMAL [None]
  - IMPAIRED WORK ABILITY [None]
  - PELVIC VENOUS THROMBOSIS [None]
